FAERS Safety Report 10183513 (Version 4)
Quarter: 2014Q2

REPORT INFORMATION
  Report Type: Spontaneous
  Country: IE (occurrence: IE)
  Receive Date: 20140520
  Receipt Date: 20140603
  Transmission Date: 20141212
  Serious: Yes (Death, Hospitalization)
  Sender: FDA-Public Use
  Company Number: IE-BAYER-2013-135469

PATIENT
  Age: 95 Year
  Sex: Female

DRUGS (2)
  1. XARELTO [Suspect]
     Dosage: 15 MG, UNK
     Route: 048
  2. ACETYLSALICYLIC ACID({=100 MG) [Interacting]

REACTIONS (4)
  - Gastrointestinal haemorrhage [None]
  - Melaena [None]
  - Drug interaction [None]
  - Cardiac failure congestive [Fatal]
